FAERS Safety Report 9596590 (Version 3)
Quarter: 2014Q3

REPORT INFORMATION
  Report Type: Report from Study
  Country: DE (occurrence: DE)
  Receive Date: 20131004
  Receipt Date: 20140805
  Transmission Date: 20150326
  Serious: Yes (Hospitalization)
  Sender: FDA-Public Use
  Company Number: DE-ABBVIE-13P-062-1153258-00

PATIENT
  Age: 23 Year
  Sex: Female
  Weight: 117 kg

DRUGS (4)
  1. HUMIRA [Suspect]
     Active Substance: ADALIMUMAB
     Route: 058
     Dates: start: 20131018, end: 20131121
  2. LEFLUNOMIDE. [Suspect]
     Active Substance: LEFLUNOMIDE
     Indication: PRODUCT USED FOR UNKNOWN INDICATION
  3. HUMIRA [Suspect]
     Active Substance: ADALIMUMAB
     Route: 058
     Dates: start: 20131218, end: 20140224
  4. HUMIRA [Suspect]
     Active Substance: ADALIMUMAB
     Indication: RHEUMATOID ARTHRITIS
     Route: 058
     Dates: start: 20120308, end: 20130910

REACTIONS (4)
  - Meniscus injury [Unknown]
  - Arthralgia [Unknown]
  - Arthroscopy [Recovered/Resolved]
  - Pseudarthrosis [Unknown]

NARRATIVE: CASE EVENT DATE: 201309
